FAERS Safety Report 5487253-6 (Version None)
Quarter: 2007Q4

REPORT INFORMATION
  Report Type: 
  Country: None (occurrence: None)
  Receive Date: 20071015
  Receipt Date: 20071015
  Transmission Date: 20080405
  Serious: Yes (Hospitalization)
  Sender: FDA-Public Use
  Company Number: A700193803

PATIENT
  Age: 45 Year
  Sex: Male

DRUGS (1)
  1. AMIODARONE HCL [Suspect]
     Indication: CONGESTIVE CARDIOMYOPATHY

REACTIONS (2)
  - EPIDIDYMAL TENDERNESS [None]
  - SCROTAL PAIN [None]
